FAERS Safety Report 14815403 (Version 4)
Quarter: 2018Q2

REPORT INFORMATION
  Report Type: Spontaneous
  Country: US (occurrence: US)
  Receive Date: 20180426
  Receipt Date: 20180629
  Transmission Date: 20180711
  Serious: Yes (Other)
  Sender: FDA-Public Use
  Company Number: US-PFIZER INC-2018168371

PATIENT
  Age: 71 Year
  Sex: Female
  Weight: 83.9 kg

DRUGS (2)
  1. IBRANCE [Suspect]
     Active Substance: PALBOCICLIB
     Indication: BREAST CANCER METASTATIC
     Dosage: 125 MG, CYCLIC (DAY 1-21, Q 28 DAYS)
     Route: 048
     Dates: start: 20180406
  2. IBRANCE [Suspect]
     Active Substance: PALBOCICLIB
     Dosage: 100 MG, CYCLIC (DAYS 1-28 Q28 DAYS)
     Route: 048
     Dates: start: 20180406

REACTIONS (10)
  - Platelet count decreased [Unknown]
  - Condition aggravated [Unknown]
  - Dyspnoea [Unknown]
  - Contusion [Unknown]
  - White blood cell count decreased [Unknown]
  - Cough [Unknown]
  - Red blood cell count decreased [Unknown]
  - Cardiac flutter [Recovered/Resolved]
  - Alopecia [Unknown]
  - Blood potassium increased [Unknown]

NARRATIVE: CASE EVENT DATE: 2018
